FAERS Safety Report 18756787 (Version 1)
Quarter: 2021Q1

REPORT INFORMATION
  Report Type: Spontaneous
  Country: US (occurrence: US)
  Receive Date: 20210119
  Receipt Date: 20210119
  Transmission Date: 20210419
  Serious: Yes (Death, Other)
  Sender: FDA-Public Use
  Company Number: US-009507513-2101USA008345

PATIENT

DRUGS (1)
  1. JANUVIA [Suspect]
     Active Substance: SITAGLIPTIN PHOSPHATE
     Dosage: UNK
     Route: 048
     Dates: start: 20100101, end: 20130523

REACTIONS (2)
  - Death [Fatal]
  - Pancreatic carcinoma [Unknown]

NARRATIVE: CASE EVENT DATE: 2012
